FAERS Safety Report 4769839-7 (Version None)
Quarter: 2005Q3

REPORT INFORMATION
  Report Type: 
  Country: None (occurrence: None)
  Receive Date: 20050912
  Receipt Date: 20050606
  Transmission Date: 20060218
  Serious: No
  Sender: FDA-Public Use
  Company Number: 2005-00718

PATIENT
  Age: 72 Year
  Sex: Male
  Weight: 72.6 kg

DRUGS (4)
  1. VELCADE [Suspect]
     Indication: MULTIPLE MYELOMA
     Dosage: Q4WEEKS, IV BOLUS; 2/WK X2 FOLLOWED BY 10DS REST, IV BOLUS
     Route: 040
     Dates: start: 20040501
  2. VELCADE [Suspect]
     Indication: MULTIPLE MYELOMA
     Dosage: Q4WEEKS, IV BOLUS; 2/WK X2 FOLLOWED BY 10DS REST, IV BOLUS
     Route: 040
     Dates: start: 20050201
  3. . [Concomitant]
  4. ZOMETA [Concomitant]

REACTIONS (4)
  - PRURITUS [None]
  - PSORIASIS [None]
  - RASH [None]
  - SCAB [None]
